FAERS Safety Report 10373972 (Version 2)
Quarter: 2014Q4

REPORT INFORMATION
  Report Type: Spontaneous
  Country: IT (occurrence: IT)
  Receive Date: 20140810
  Receipt Date: 20141112
  Transmission Date: 20150528
  Serious: Yes (Disabling, Other)
  Sender: FDA-Public Use
  Company Number: IT-009507513-1408ITA002603

PATIENT
  Age: 64 Year
  Sex: Female

DRUGS (7)
  1. FOSAVANCE [Suspect]
     Active Substance: ALENDRONATE SODIUM\CHOLECALCIFEROL
     Indication: OSTEOPOROSIS
     Dosage: 1 DOSE (UNIT), WEEKLY
     Route: 048
     Dates: start: 2008, end: 201207
  2. SOTALEX [Concomitant]
     Active Substance: SOTALOL
  3. CARDIOASPIRIN [Concomitant]
     Active Substance: ASPIRIN
  4. CLODRONIC ACID [Suspect]
     Active Substance: CLODRONIC ACID
     Dosage: 1 DF, QM, , FORMULATION- VIAL
     Dates: end: 2007
  5. TRIATEC (RAMIPRIL) [Concomitant]
     Active Substance: RAMIPRIL
  6. TOTALIP [Concomitant]
     Active Substance: ATORVASTATIN
  7. CLODRONIC ACID [Suspect]
     Active Substance: CLODRONIC ACID
     Indication: OSTEOPOROSIS
     Dosage: 1 DF, QW, FORMULATION- VIAL
     Dates: start: 2005

REACTIONS (1)
  - Osteonecrosis of jaw [Not Recovered/Not Resolved]

NARRATIVE: CASE EVENT DATE: 20140401
